FAERS Safety Report 13439951 (Version 1)
Quarter: 2017Q2

REPORT INFORMATION
  Report Type: Spontaneous
  Country: US (occurrence: US)
  Receive Date: 20170413
  Receipt Date: 20170413
  Transmission Date: 20170830
  Serious: No
  Sender: FDA-Public Use
  Company Number: US-GE HEALTHCARE LIFE SCIENCES-2017CSU000577

PATIENT
  Age: 17 Year
  Sex: Female
  Weight: 100 kg

DRUGS (2)
  1. OPTISON [Suspect]
     Active Substance: ALBUMIN HUMAN
     Indication: TRAUMATIC LIVER INJURY
     Dosage: 0.5 ML, SINGLE
     Route: 040
  2. OPTISON [Suspect]
     Active Substance: ALBUMIN HUMAN
     Indication: TRAUMATIC RENAL INJURY

REACTIONS (3)
  - Off label use [Recovered/Resolved]
  - Drug ineffective for unapproved indication [Recovered/Resolved]
  - No adverse event [Recovered/Resolved]
